FAERS Safety Report 18833785 (Version 5)
Quarter: 2021Q3

REPORT INFORMATION
  Report Type: Spontaneous
  Country: CA (occurrence: CA)
  Receive Date: 20210203
  Receipt Date: 20210707
  Transmission Date: 20211014
  Serious: Yes (Other)
  Sender: FDA-Public Use
  Company Number: CA-REGENERON PHARMACEUTICALS, INC.-2021-17907

PATIENT

DRUGS (15)
  1. EYLEA [Suspect]
     Active Substance: AFLIBERCEPT
     Dosage: UNK
     Dates: start: 20200623, end: 20200623
  2. DEXPANTHENOL W/HYALURONATE SODIUM [Suspect]
     Active Substance: DEXPANTHENOL\HYALURONATE SODIUM
     Indication: PRODUCT USED FOR UNKNOWN INDICATION
     Dosage: UNK
     Dates: start: 2020, end: 2020
  3. EYLEA [Suspect]
     Active Substance: AFLIBERCEPT
     Indication: PRODUCT USED FOR UNKNOWN INDICATION
     Dosage: UNK
     Dates: start: 20200204, end: 20200204
  4. EYLEA [Suspect]
     Active Substance: AFLIBERCEPT
     Dosage: UNK
     Dates: start: 20200826, end: 20200826
  5. PROVIODINE [Suspect]
     Active Substance: POVIDONE-IODINE
     Dosage: UNK
     Route: 047
     Dates: start: 20200303, end: 20200303
  6. PROVIODINE [Suspect]
     Active Substance: POVIDONE-IODINE
     Dosage: UNK
     Route: 047
     Dates: start: 20200331, end: 20200331
  7. PROVIODINE [Suspect]
     Active Substance: POVIDONE-IODINE
     Dosage: UNK
     Route: 047
     Dates: start: 20200826, end: 20200826
  8. EYLEA [Suspect]
     Active Substance: AFLIBERCEPT
     Dosage: UNK
     Dates: start: 20200630, end: 20200630
  9. PROVIODINE [Suspect]
     Active Substance: POVIDONE-IODINE
     Indication: PRODUCT USED FOR UNKNOWN INDICATION
     Dosage: UNK
     Route: 047
     Dates: start: 20200204, end: 20200204
  10. PROVIODINE [Suspect]
     Active Substance: POVIDONE-IODINE
     Dosage: UNK
     Route: 047
     Dates: start: 20200630, end: 20200630
  11. EYLEA [Suspect]
     Active Substance: AFLIBERCEPT
     Dosage: UNK
     Dates: start: 20200331, end: 20200331
  12. EYLEA [Suspect]
     Active Substance: AFLIBERCEPT
     Dosage: UNK
     Dates: start: 20200512, end: 20200512
  13. EYLEA [Suspect]
     Active Substance: AFLIBERCEPT
     Dosage: UNK
     Dates: start: 20200303, end: 20200303
  14. PROVIODINE [Suspect]
     Active Substance: POVIDONE-IODINE
     Dosage: UNK
     Route: 047
     Dates: start: 20200623, end: 20200623
  15. PROVIODINE [Suspect]
     Active Substance: POVIDONE-IODINE
     Dosage: UNK
     Route: 047
     Dates: start: 20200512, end: 20200512

REACTIONS (12)
  - Drug hypersensitivity [Not Recovered/Not Resolved]
  - Product dose omission issue [Unknown]
  - Periorbital discomfort [Recovered/Resolved]
  - Nausea [Recovered/Resolved]
  - Off label use [Unknown]
  - Eye pain [Unknown]
  - Headache [Recovered/Resolved]
  - Muscle fatigue [Recovered/Resolved]
  - Eye irritation [Recovering/Resolving]
  - Eye irritation [Unknown]
  - Conjunctivitis [Recovered/Resolved]
  - Product container issue [Unknown]

NARRATIVE: CASE EVENT DATE: 20200204
